FAERS Safety Report 19163611 (Version 1)
Quarter: 2021Q2

REPORT INFORMATION
  Report Type: Spontaneous
  Country: US (occurrence: US)
  Receive Date: 20210420
  Receipt Date: 20210420
  Transmission Date: 20210717
  Serious: Yes (Death)
  Sender: FDA-Public Use
  Company Number: None

PATIENT
  Age: 72 Year
  Sex: Female

DRUGS (13)
  1. HYDROCODONE/APAP 10MG?325MG [Concomitant]
  2. PRAVASTATIN 10MG [Concomitant]
     Active Substance: PRAVASTATIN
  3. ALBUTEROL HFA [Concomitant]
     Active Substance: ALBUTEROL SULFATE
  4. TIVICAY [Suspect]
     Active Substance: DOLUTEGRAVIR SODIUM
     Indication: HIV INFECTION
     Route: 048
     Dates: start: 20210323, end: 20210416
  5. LEVETIRACETAM 500MG [Concomitant]
     Active Substance: LEVETIRACETAM
  6. ALPRAZOLAM 0.5MG [Concomitant]
     Active Substance: ALPRAZOLAM
  7. DOCUSATE 100MG [Concomitant]
     Active Substance: DOCUSATE
  8. AMLODIPINE [Concomitant]
     Active Substance: AMLODIPINE BESYLATE
  9. SENNA 8.6 [Concomitant]
  10. PEG 3350 [Concomitant]
     Active Substance: POLYETHYLENE GLYCOL 3350
  11. PREZCOBIX 850MG?150MG [Concomitant]
  12. MORPHINE SULFATE ER 30MG [Concomitant]
     Active Substance: MORPHINE SULFATE
  13. DEXAMETHASONE 2MG [Concomitant]

REACTIONS (1)
  - Neoplasm malignant [None]

NARRATIVE: CASE EVENT DATE: 20210416
